FAERS Safety Report 5966102-3 (Version None)
Quarter: 2008Q4

REPORT INFORMATION
  Report Type: 
  Country: None (occurrence: None)
  Receive Date: 20081125
  Receipt Date: 20081113
  Transmission Date: 20090506
  Serious: No
  Sender: FDA-Public Use
  Company Number: US-ELI_LILLY_AND_COMPANY-US200811003121

PATIENT
  Sex: Male

DRUGS (2)
  1. CIALIS [Suspect]
     Dosage: 10 MG, UNKNOWN
     Route: 065
     Dates: start: 20071101
  2. QUINAPRIL HCL AND HYDROCHLOROTHIAZIDE [Concomitant]
     Indication: BLOOD PRESSURE
     Dosage: UNK, UNKNOWN
     Route: 065

REACTIONS (5)
  - DISORIENTATION [None]
  - EYE DISORDER [None]
  - FALL [None]
  - GAIT DISTURBANCE [None]
  - ORTHOSTATIC HYPOTENSION [None]
